FAERS Safety Report 23752409 (Version 3)
Quarter: 2024Q2

REPORT INFORMATION
  Report Type: Report from Study
  Country: US (occurrence: US)
  Receive Date: 20240417
  Receipt Date: 20240529
  Transmission Date: 20240716
  Serious: Yes (Other)
  Sender: FDA-Public Use
  Company Number: US-ARGENX-2022-ARGX-US000681

PATIENT

DRUGS (1)
  1. VYVGART [Suspect]
     Active Substance: EFGARTIGIMOD ALFA-FCAB
     Indication: Myasthenia gravis
     Dosage: 1043 MG, ONCE WEEKLY FOR 4 WEEKS (STRENGTH 400MG/20ML)
     Route: 042
     Dates: start: 20220307

REACTIONS (25)
  - Dyspnoea at rest [Unknown]
  - Myasthenia gravis [Unknown]
  - Dyspnoea [Not Recovered/Not Resolved]
  - Dysarthria [Unknown]
  - Dysphagia [Unknown]
  - Fatigue [Unknown]
  - Salivary hypersecretion [Unknown]
  - Diplopia [Unknown]
  - Eyelid ptosis [Unknown]
  - Symptom recurrence [Unknown]
  - Dyspnoea exertional [Unknown]
  - Aphasia [Unknown]
  - Speech disorder [Unknown]
  - Asthenia [Unknown]
  - Inappropriate schedule of product administration [Unknown]
  - Loss of therapeutic response [Unknown]
  - Fatigue [Recovering/Resolving]
  - Dyspnoea [Recovering/Resolving]
  - Nasopharyngitis [Recovered/Resolved]
  - Product dose omission issue [Recovered/Resolved]
  - Myasthenia gravis [Unknown]
  - Cardiac disorder [Unknown]
  - Dyspnoea exertional [Unknown]
  - Dyspnoea [Unknown]
  - Fatigue [Unknown]

NARRATIVE: CASE EVENT DATE: 20231201
